FAERS Safety Report 21598287 (Version 1)
Quarter: 2022Q4

REPORT INFORMATION
  Report Type: Spontaneous
  Country: CN (occurrence: CN)
  Receive Date: 20221115
  Receipt Date: 20221115
  Transmission Date: 20230113
  Serious: Yes (Other)
  Sender: FDA-Public Use
  Company Number: CN-PFIZER INC-PV202200102455

PATIENT
  Age: 6 Year
  Sex: Male
  Weight: 25 kg

DRUGS (2)
  1. AZITHROMYCIN [Suspect]
     Active Substance: AZITHROMYCIN
     Indication: Bronchitis
     Dosage: 0.25 G, 1X/DAY
     Route: 048
     Dates: start: 20221103, end: 20221104
  2. CEFACLOR [Concomitant]
     Active Substance: CEFACLOR
     Indication: Bronchitis
     Dosage: 187 MG, 3X/DAY
     Route: 048
     Dates: start: 20221103, end: 20221103

REACTIONS (3)
  - Drug eruption [Recovering/Resolving]
  - Pyrexia [Unknown]
  - Rash [Unknown]

NARRATIVE: CASE EVENT DATE: 20221101
